FAERS Safety Report 6830587-0 (Version None)
Quarter: 2010Q3

REPORT INFORMATION
  Report Type: 
  Country: None (occurrence: None)
  Receive Date: 20100706
  Receipt Date: 20100623
  Transmission Date: 20110219
  Serious: Yes (Death, Hospitalization)
  Sender: FDA-Public Use
  Company Number: 2010AC000109

PATIENT
  Age: 72 Year
  Sex: Female

DRUGS (18)
  1. DIGOXIN [Suspect]
     Dates: start: 20070115
  2. DIGOXIN [Suspect]
     Dosage: 0.125 MG; PO; PO
     Route: 048
     Dates: start: 20060101, end: 20080201
  3. DIGOXIN [Suspect]
     Dosage: 0.125 MG; TIW; PO
     Route: 048
     Dates: start: 20080201, end: 20080301
  4. PREDNISONE [Concomitant]
  5. COREG [Concomitant]
  6. LEVAQUIN [Concomitant]
  7. ACTOS [Concomitant]
  8. FERROUS SULFATE [Concomitant]
  9. SURFAK [Concomitant]
  10. AMIODARONE HCL [Concomitant]
  11. LASIX [Concomitant]
  12. POTASSIUM CHLORIDE [Concomitant]
  13. CLINDAMYCIN [Concomitant]
  14. INSULIN [Concomitant]
  15. LEVOPHED [Concomitant]
  16. FLUCONAZOLE [Concomitant]
  17. CIPROFLOXACIN [Concomitant]
  18. DOBUTREX [Concomitant]

REACTIONS (32)
  - ALTERED STATE OF CONSCIOUSNESS [None]
  - ANHEDONIA [None]
  - ANXIETY [None]
  - ATRIAL FIBRILLATION [None]
  - CELLULITIS [None]
  - CHEST INJURY [None]
  - CONSTIPATION [None]
  - DECREASED APPETITE [None]
  - DIABETES MELLITUS INADEQUATE CONTROL [None]
  - DIVERTICULUM INTESTINAL [None]
  - DIZZINESS [None]
  - ECONOMIC PROBLEM [None]
  - FALL [None]
  - GASTRITIS ATROPHIC [None]
  - HAEMATOCHEZIA [None]
  - HAEMORRHOIDS [None]
  - HYPERGLYCAEMIA [None]
  - HYPONATRAEMIA [None]
  - HYPOTENSION [None]
  - MULTIPLE INJURIES [None]
  - MUSCULOSKELETAL CHEST PAIN [None]
  - NAUSEA [None]
  - PAIN [None]
  - PARTNER STRESS [None]
  - PLEURAL EFFUSION [None]
  - PNEUMONIA [None]
  - PNEUMONIA VIRAL [None]
  - RENAL FAILURE ACUTE [None]
  - RENAL INJURY [None]
  - SEPSIS [None]
  - THERAPEUTIC AGENT TOXICITY [None]
  - URINARY TRACT INFECTION [None]
